FAERS Safety Report 7591495-3 (Version None)
Quarter: 2011Q2

REPORT INFORMATION
  Report Type: 
  Country: None (occurrence: None)
  Receive Date: 20110627
  Receipt Date: 20110614
  Transmission Date: 20111010
  Serious: Yes (Hospitalization)
  Sender: FDA-Public Use
  Company Number: 2011MA001541

PATIENT
  Age: 84 Year
  Sex: Female

DRUGS (4)
  1. DIAZEPAM [Suspect]
     Indication: ANXIETY
     Dosage: 2 MG; PO
     Route: 048
     Dates: start: 20101018
  2. BUPRENORPHINE [Suspect]
     Indication: SPINAL FRACTURE
     Dosage: 10 MCG; QH; TRSD
     Dates: start: 20101213, end: 20110125
  3. ADCAL-D3 [Concomitant]
  4. RANITIDINE [Concomitant]

REACTIONS (1)
  - DYSPNOEA [None]
